FAERS Safety Report 20879041 (Version 2)
Quarter: 2022Q2

REPORT INFORMATION
  Report Type: Spontaneous
  Country: US (occurrence: US)
  Receive Date: 20220526
  Receipt Date: 20220629
  Transmission Date: 20220720
  Serious: No
  Sender: FDA-Public Use
  Company Number: US-PFIZER INC-202200677064

PATIENT
  Age: 12 Year
  Sex: Male

DRUGS (1)
  1. GENOTROPIN [Suspect]
     Active Substance: SOMATROPIN
     Indication: Blood growth hormone abnormal
     Dosage: UNK, 1X/DAY (1.2 ONCE A DAY)
     Dates: start: 20220412

REACTIONS (3)
  - Poor quality device used [Unknown]
  - Drug dose omission by device [Unknown]
  - Device physical property issue [Unknown]
